FAERS Safety Report 7602191-8 (Version None)
Quarter: 2011Q3

REPORT INFORMATION
  Report Type: 
  Country: None (occurrence: None)
  Receive Date: 20110711
  Receipt Date: 20110602
  Transmission Date: 20111222
  Serious: No
  Sender: FDA-Public Use
  Company Number: US-AMGEN-USASP2011027420

PATIENT
  Age: 47 Year
  Sex: Female
  Weight: 64.308 kg

DRUGS (1)
  1. PROLIA [Suspect]
     Indication: OSTEOPOROSIS POSTMENOPAUSAL
     Dosage: 60 MG, Q6MO
     Route: 058
     Dates: start: 20110510

REACTIONS (5)
  - PAIN [None]
  - HEADACHE [None]
  - DIZZINESS [None]
  - SOMNOLENCE [None]
  - BACK PAIN [None]
